FAERS Safety Report 9411872 (Version 5)
Quarter: 2014Q3

REPORT INFORMATION
  Report Type: Spontaneous
  Country: JP (occurrence: JP)
  Receive Date: 20130722
  Receipt Date: 20140901
  Transmission Date: 20150326
  Serious: Yes (Life-Threatening, Hospitalization, Other)
  Sender: FDA-Public Use
  Company Number: PHHY2013JP077165

PATIENT
  Age: 56 Year
  Sex: Male
  Weight: 51 kg

DRUGS (3)
  1. TEGRETOL [Suspect]
     Active Substance: CARBAMAZEPINE
     Indication: EPILEPSY
     Dosage: 100 MG, TID
     Route: 048
     Dates: start: 201108, end: 20111014
  2. BASEN//VOGLIBOSE [Concomitant]
     Active Substance: VOGLIBOSE
     Indication: DIABETES MELLITUS
     Dosage: 0.6 MG
     Route: 048
     Dates: start: 20110627, end: 20110915
  3. BAYASPIRIN [Concomitant]
     Active Substance: ASPIRIN
     Dosage: 100 MG
     Route: 048
     Dates: start: 20110627, end: 20111028

REACTIONS (15)
  - Human herpesvirus 6 infection [Unknown]
  - Pain [Unknown]
  - Diabetes mellitus [Recovering/Resolving]
  - Sepsis [Recovering/Resolving]
  - Pneumocystis jirovecii pneumonia [Recovering/Resolving]
  - Generalised erythema [Recovering/Resolving]
  - Rash generalised [Recovering/Resolving]
  - Decreased appetite [Recovering/Resolving]
  - Sinusitis [Recovered/Resolved]
  - Immune reconstitution inflammatory syndrome [Unknown]
  - Pyrexia [Recovering/Resolving]
  - Hepatic function abnormal [Recovering/Resolving]
  - Cytomegalovirus infection [Unknown]
  - Drug reaction with eosinophilia and systemic symptoms [Recovering/Resolving]
  - Herpes simplex [Unknown]

NARRATIVE: CASE EVENT DATE: 201109
